FAERS Safety Report 10223154 (Version 1)
Quarter: 2014Q2

REPORT INFORMATION
  Report Type: Spontaneous
  Country: US (occurrence: US)
  Receive Date: 20140608
  Receipt Date: 20140608
  Transmission Date: 20141212
  Serious: No
  Sender: FDA-Public Use
  Company Number: US-009507513-1406USA003881

PATIENT
  Sex: Female

DRUGS (18)
  1. SIMVASTATIN TABLETS, USP [Suspect]
  2. KLOR-CON [Concomitant]
  3. ICAPS [Concomitant]
  4. ADVAIR [Concomitant]
  5. MONTELUKAST SODIUM [Concomitant]
  6. XOPENEX [Concomitant]
  7. ALBUTEROL [Concomitant]
  8. HUMULIN [Concomitant]
  9. LANTUS [Concomitant]
  10. ISO (ISOSORBIDE MONONITRATE) [Concomitant]
  11. FUROSEMIDE [Concomitant]
  12. VERAPAMIL [Concomitant]
  13. LOSARTAN POTASSIUM [Concomitant]
  14. CARAFATE [Concomitant]
  15. NEXIUM [Concomitant]
  16. BAYER 1219 [Concomitant]
  17. BREEZEE MIST [Concomitant]
  18. CODEINE [Concomitant]

REACTIONS (1)
  - Drug hypersensitivity [Unknown]
